FAERS Safety Report 19617551 (Version 1)
Quarter: 2021Q3

REPORT INFORMATION
  Report Type: Spontaneous
  Country: US (occurrence: US)
  Receive Date: 20210727
  Receipt Date: 20210727
  Transmission Date: 20211014
  Serious: Yes (Other)
  Sender: FDA-Public Use
  Company Number: US-ABBVIE-21K-163-3917940-00

PATIENT
  Sex: Female

DRUGS (3)
  1. ORILISSA [Suspect]
     Active Substance: ELAGOLIX SODIUM
     Indication: ENDOMETRIOSIS
     Route: 048
  2. NORETHINDRONE. [Concomitant]
     Active Substance: NORETHINDRONE
     Indication: PRODUCT USED FOR UNKNOWN INDICATION
  3. MAGNESIUM [Concomitant]
     Active Substance: MAGNESIUM
     Indication: SUPPLEMENTATION THERAPY

REACTIONS (14)
  - Abdominal pain [Not Recovered/Not Resolved]
  - Pain [Unknown]
  - Adhesion [Unknown]
  - Menopause [Unknown]
  - Mental disorder [Unknown]
  - Anxiety [Unknown]
  - Endometriosis [Recovering/Resolving]
  - Cyst [Unknown]
  - Alopecia [Not Recovered/Not Resolved]
  - Dysmenorrhoea [Unknown]
  - Adverse drug reaction [Unknown]
  - Hot flush [Not Recovered/Not Resolved]
  - Morbid thoughts [Unknown]
  - Malaise [Recovering/Resolving]
